FAERS Safety Report 7247368-9 (Version None)
Quarter: 2011Q1

REPORT INFORMATION
  Report Type: 
  Country: None (occurrence: None)
  Receive Date: 20110127
  Receipt Date: 20110117
  Transmission Date: 20110831
  Serious: Yes (Other)
  Sender: FDA-Public Use
  Company Number: PHHY2011US04231

PATIENT
  Sex: Female

DRUGS (7)
  1. ASPIRIN [Concomitant]
  2. ATENOLOL [Concomitant]
  3. FISH OIL [Concomitant]
  4. LEVOTHYROXINE SODIUM [Concomitant]
  5. RECLAST [Suspect]
     Dosage: 5 MG
     Dates: start: 20101021
  6. SYMBICORT [Concomitant]
  7. CALTRATE [Concomitant]

REACTIONS (9)
  - JOINT SWELLING [None]
  - BONE PAIN [None]
  - DYSPNOEA [None]
  - OEDEMA PERIPHERAL [None]
  - DRY SKIN [None]
  - MOVEMENT DISORDER [None]
  - TOOTH LOSS [None]
  - DIPLEGIA [None]
  - PAIN [None]
